FAERS Safety Report 16274956 (Version 1)
Quarter: 2019Q2

REPORT INFORMATION
  Report Type: Report from Study
  Country: US (occurrence: US)
  Receive Date: 20190506
  Receipt Date: 20190506
  Transmission Date: 20190711
  Serious: Yes (Other)
  Sender: FDA-Public Use
  Company Number: US-JNJFOC-20190443171

PATIENT

DRUGS (6)
  1. CYCLOPHOSPHAMIDE. [Suspect]
     Active Substance: CYCLOPHOSPHAMIDE
     Indication: DIFFUSE LARGE B-CELL LYMPHOMA
     Route: 042
  2. OBINUTUZUMAB. [Suspect]
     Active Substance: OBINUTUZUMAB
     Indication: DIFFUSE LARGE B-CELL LYMPHOMA
     Dosage: 1000MG DAY 1 OF CYCLES 1-8 WITH ADDITIONAL DOSES ON D8 AND D15 OF CYCLE1
     Route: 042
  3. DOXORUBICIN HYDROCHLORIDE. [Suspect]
     Active Substance: DOXORUBICIN HYDROCHLORIDE
     Indication: DIFFUSE LARGE B-CELL LYMPHOMA
     Route: 042
  4. PREDNISONE. [Suspect]
     Active Substance: PREDNISONE
     Indication: DIFFUSE LARGE B-CELL LYMPHOMA
     Route: 048
  5. VINCRISTINE [Suspect]
     Active Substance: VINCRISTINE
     Indication: DIFFUSE LARGE B-CELL LYMPHOMA
     Route: 042
  6. METHYLPREDNISOLONE. [Suspect]
     Active Substance: METHYLPREDNISOLONE
     Indication: DIFFUSE LARGE B-CELL LYMPHOMA
     Route: 042

REACTIONS (20)
  - Pneumonia [Unknown]
  - Small intestinal obstruction [Unknown]
  - Off label use [Unknown]
  - Pulmonary embolism [Unknown]
  - Wound [Unknown]
  - Left ventricular dysfunction [Unknown]
  - Febrile neutropenia [Unknown]
  - Hypoxia [Unknown]
  - Mental status changes [Unknown]
  - Infusion related reaction [Unknown]
  - Catheter site cellulitis [Unknown]
  - Product use in unapproved indication [Unknown]
  - Neutropenia [Unknown]
  - Diarrhoea [Unknown]
  - Dehydration [Unknown]
  - Intra-abdominal haemorrhage [Unknown]
  - Herpes zoster [Unknown]
  - Sepsis [Unknown]
  - Aspartate aminotransferase increased [Unknown]
  - Hypogammaglobulinaemia [Unknown]
